FAERS Safety Report 17363485 (Version 2)
Quarter: 2020Q1

REPORT INFORMATION
  Report Type: Report from Study
  Country: None (occurrence: KR)
  Receive Date: 20200203
  Receipt Date: 20200225
  Transmission Date: 20200409
  Serious: Yes (Death)
  Sender: FDA-Public Use
  Company Number: KR-ABBVIE-20P-090-3228422-00

PATIENT
  Age: 6 Year
  Sex: Male
  Weight: 36 kg

DRUGS (4)
  1. VENETOCLAX. [Suspect]
     Active Substance: VENETOCLAX
     Indication: PRECURSOR B-LYMPHOBLASTIC LYMPHOMA REFRACTORY
     Route: 048
     Dates: start: 20191024, end: 20191024
  2. VENETOCLAX. [Suspect]
     Active Substance: VENETOCLAX
     Route: 048
     Dates: start: 20191025, end: 20191025
  3. VENETOCLAX. [Suspect]
     Active Substance: VENETOCLAX
     Route: 048
     Dates: start: 20191026, end: 20191103
  4. VENETOCLAX. [Suspect]
     Active Substance: VENETOCLAX
     Route: 048
     Dates: start: 20191104, end: 20191121

REACTIONS (1)
  - Fungal sepsis [Fatal]

NARRATIVE: CASE EVENT DATE: 20191126
